FAERS Safety Report 25366580 (Version 2)
Quarter: 2025Q3

REPORT INFORMATION
  Report Type: Spontaneous
  Country: US (occurrence: US)
  Receive Date: 20250528
  Receipt Date: 20250701
  Transmission Date: 20251021
  Serious: Yes (Other)
  Sender: COOPERSURGICAL
  Company Number: US-COOPERSURGICAL, INC.-2025CPS004139

PATIENT
  Sex: Female
  Weight: 63.492 kg

DRUGS (4)
  1. PARAGARD T 380A [Suspect]
     Active Substance: COPPER
     Route: 015
     Dates: start: 20150316
  2. HUMALOG [Concomitant]
     Active Substance: INSULIN LISPRO
     Dates: start: 200301
  3. ADDERALL [Concomitant]
     Active Substance: AMPHETAMINE ASPARTATE\AMPHETAMINE SULFATE\DEXTROAMPHETAMINE SACCHARATE\DEXTROAMPHETAMINE SULFATE
     Dates: start: 201601, end: 201801
  4. KEPPRA [Concomitant]
     Active Substance: LEVETIRACETAM
     Dates: start: 200801, end: 202001

REACTIONS (9)
  - Deformity [Not Recovered/Not Resolved]
  - Device breakage [Recovered/Resolved]
  - Foreign body in reproductive tract [Recovered/Resolved]
  - Complication of device removal [Recovered/Resolved]
  - Anxiety [Not Recovered/Not Resolved]
  - Depression [Unknown]
  - Post-traumatic stress disorder [Unknown]
  - Emotional distress [Unknown]
  - Pain [Not Recovered/Not Resolved]

NARRATIVE: CASE EVENT DATE: 20160101
